FAERS Safety Report 8377904-0 (Version None)
Quarter: 2012Q2

REPORT INFORMATION
  Report Type: 
  Country: None (occurrence: None)
  Receive Date: 20120522
  Receipt Date: 20120508
  Transmission Date: 20120825
  Serious: No
  Sender: FDA-Public Use
  Company Number: US-ELI_LILLY_AND_COMPANY-US201205004418

PATIENT
  Sex: Female

DRUGS (2)
  1. CYMBALTA [Suspect]
     Dosage: 60 MG, UNKNOWN
  2. CYMBALTA [Suspect]
     Dosage: UNK, UNKNOWN

REACTIONS (2)
  - HEPATIC ENZYME INCREASED [None]
  - BILE DUCT OBSTRUCTION [None]
